FAERS Safety Report 5833689-0 (Version None)
Quarter: 2008Q3

REPORT INFORMATION
  Report Type: 
  Country: None (occurrence: None)
  Receive Date: 20080801
  Receipt Date: 20080718
  Transmission Date: 20090109
  Serious: Yes (Death)
  Sender: FDA-Public Use
  Company Number: 0PER20080013

PATIENT
  Age: 15 Year
  Sex: Male

DRUGS (6)
  1. OPANA ER [Suspect]
     Dosage: 45 TABLETS, PER ORAL
     Route: 048
     Dates: start: 20080125, end: 20080126
  2. CITALOPRAM HYDROBROMIDE [Suspect]
     Dates: end: 20080126
  3. ALCOHOL [Suspect]
     Dates: end: 20080126
  4. NICOTINE [Suspect]
     Dates: end: 20080126
  5. CANNABINOIDS [Suspect]
     Dates: end: 20080126
  6. RITALIN [Concomitant]

REACTIONS (7)
  - ACCIDENTAL DEATH [None]
  - ALCOHOL POISONING [None]
  - DRUG TOXICITY [None]
  - EPISTAXIS [None]
  - INTENTIONAL DRUG MISUSE [None]
  - OVERDOSE [None]
  - UNRESPONSIVE TO STIMULI [None]
